FAERS Safety Report 11591523 (Version 1)
Quarter: 2015Q4

REPORT INFORMATION
  Report Type: Spontaneous
  Country: BR (occurrence: BR)
  Receive Date: 20151005
  Receipt Date: 20151005
  Transmission Date: 20160304
  Serious: No
  Sender: FDA-Public Use
  Company Number: BR-NOVEN PHARMACEUTICALS, INC.-14BR013009

PATIENT
  Age: 47 Year
  Sex: Female

DRUGS (1)
  1. ESTRADIOL/NORETHINDRONE ACETATE [Suspect]
     Active Substance: ESTRADIOL\NORETHINDRONE ACETATE
     Indication: PREMATURE MENOPAUSE
     Dosage: 50/140UG/DAY, Q2W
     Route: 062
     Dates: start: 201411

REACTIONS (2)
  - Retching [Not Recovered/Not Resolved]
  - Abdominal pain [Not Recovered/Not Resolved]

NARRATIVE: CASE EVENT DATE: 20141112
